FAERS Safety Report 6568661-9 (Version None)
Quarter: 2010Q1

REPORT INFORMATION
  Report Type: 
  Country: None (occurrence: None)
  Receive Date: 20100203
  Receipt Date: 20100121
  Transmission Date: 20100710
  Serious: Yes (Other)
  Sender: FDA-Public Use
  Company Number: PHEH2010US01242

PATIENT
  Sex: Male
  Weight: 101.6 kg

DRUGS (9)
  1. CYCLOSPORINE [Suspect]
     Indication: MYELOFIBROSIS
     Dosage: 300 MG, QD
     Route: 048
     Dates: start: 20070801, end: 20080521
  2. CYCLOSPORINE [Suspect]
     Indication: MYELODYSPLASTIC SYNDROME
  3. PREDNISONE [Concomitant]
     Dosage: 20 MG, BID
  4. FLUCONAZOLE [Concomitant]
     Dosage: 100 MG, QD
  5. ANDROXYL [Concomitant]
     Dosage: 10 MG, TID
  6. NYSTATIN [Concomitant]
  7. FENTANYL [Concomitant]
  8. HYDROCODONE [Concomitant]
  9. ATIVAN [Concomitant]

REACTIONS (1)
  - BLOOD COUNT ABNORMAL [None]
